FAERS Safety Report 10304847 (Version 2)
Quarter: 2014Q3

REPORT INFORMATION
  Report Type: Spontaneous
  Country: US (occurrence: US)
  Receive Date: 20140715
  Receipt Date: 20140722
  Transmission Date: 20150326
  Serious: Yes (Death, Hospitalization)
  Sender: FDA-Public Use
  Company Number: PHHY2014US085401

PATIENT

DRUGS (5)
  1. TACROLIMUS. [Suspect]
     Active Substance: TACROLIMUS
     Indication: PROPHYLAXIS AGAINST GRAFT VERSUS HOST DISEASE
  2. BUSULFAN [Concomitant]
     Active Substance: BUSULFAN
  3. CICLOSPORIN [Suspect]
     Active Substance: CYCLOSPORINE
  4. MYCOPHENOLATE MOFETIL. [Suspect]
     Active Substance: MYCOPHENOLATE MOFETIL
  5. RAPAMUNE [Suspect]
     Active Substance: SIROLIMUS

REACTIONS (14)
  - Nausea [Unknown]
  - Mental status changes [Unknown]
  - Hyponatraemia [Unknown]
  - Death [Fatal]
  - Confusional state [Unknown]
  - Gait disturbance [Unknown]
  - Vomiting [Unknown]
  - Headache [Unknown]
  - Graft versus host disease [Unknown]
  - Visual impairment [Unknown]
  - Cerebellar ataxia [Unknown]
  - Hallucination, visual [Unknown]
  - General physical health deterioration [Unknown]
  - Posterior reversible encephalopathy syndrome [Unknown]
